FAERS Safety Report 7589898-6 (Version None)
Quarter: 2011Q3

REPORT INFORMATION
  Report Type: 
  Country: None (occurrence: None)
  Receive Date: 20110705
  Receipt Date: 20110622
  Transmission Date: 20111222
  Serious: Yes (Hospitalization)
  Sender: FDA-Public Use
  Company Number: JP-ROCHE-786386

PATIENT
  Age: 71 Year
  Sex: Male

DRUGS (2)
  1. PREDNISOLONE [Concomitant]
     Dosage: DOSAGE IS UNCERTAIN
     Route: 048
     Dates: start: 20100701
  2. ACTEMRA [Suspect]
     Indication: RHEUMATOID ARTHRITIS
     Dosage: RHEUMATOID ARTHRITIS/
     Route: 041
     Dates: start: 20100701

REACTIONS (5)
  - INFECTIVE SPONDYLITIS [None]
  - PNEUMATOSIS INTESTINALIS [None]
  - PSOAS ABSCESS [None]
  - ENTEROCOLITIS [None]
  - SEPSIS [None]
